FAERS Safety Report 5189543-3 (Version None)
Quarter: 2006Q4

REPORT INFORMATION
  Report Type: 
  Country: None (occurrence: None)
  Receive Date: 20061221
  Receipt Date: 20061211
  Transmission Date: 20070319
  Serious: Yes (Other)
  Sender: FDA-Public Use
  Company Number: US-ABBOTT-06P-163-0353753-00

PATIENT
  Sex: Female
  Weight: 78.088 kg

DRUGS (7)
  1. HUMIRA [Suspect]
     Indication: PSORIATIC ARTHROPATHY
     Route: 058
     Dates: start: 20061001
  2. HUMIRA [Suspect]
     Route: 058
     Dates: start: 20060905, end: 20061001
  3. PREDNISONE TAB [Concomitant]
     Indication: PSORIATIC ARTHROPATHY
     Route: 048
     Dates: start: 20060401
  4. DIOVAN [Concomitant]
     Indication: HYPERTENSION
     Route: 048
     Dates: start: 19940101
  5. HYDROCHLOROTHIAZIDE [Concomitant]
     Indication: HYPERTENSION
     Route: 048
     Dates: start: 20000101
  6. ASPIRIN [Concomitant]
     Indication: ANTICOAGULANT THERAPY
     Route: 048
     Dates: start: 20060601
  7. OMEPRAZOLE [Concomitant]
     Indication: GASTROINTESTINAL DISORDER
     Route: 048
     Dates: start: 20030101

REACTIONS (2)
  - FUNGAL INFECTION [None]
  - INGUINAL HERNIA [None]
